FAERS Safety Report 16210693 (Version 2)
Quarter: 2019Q4

REPORT INFORMATION
  Report Type: Spontaneous
  Country: US (occurrence: US)
  Receive Date: 20190418
  Receipt Date: 20191004
  Transmission Date: 20200122
  Serious: No
  Sender: FDA-Public Use
  Company Number: US-009507513-1904USA007020

PATIENT
  Sex: Male

DRUGS (2)
  1. PREGNYL [Suspect]
     Active Substance: CHORIOGONADOTROPIN ALFA
     Indication: HYPOGONADISM MALE
     Dosage: 1500 IU, WEEKLY, MEDIAN DURATION OF THERAPY WAS 29 WEEKS.
     Route: 058
  2. PREGNYL [Suspect]
     Active Substance: CHORIOGONADOTROPIN ALFA
     Dosage: AVERAGE OF 2000 IU WEEKLY

REACTIONS (1)
  - Off label use [Unknown]
